FAERS Safety Report 13544046 (Version 4)
Quarter: 2017Q3

REPORT INFORMATION
  Report Type: Report from Study
  Country: GB (occurrence: GB)
  Receive Date: 20170515
  Receipt Date: 20170731
  Transmission Date: 20171127
  Serious: Yes (Hospitalization)
  Sender: FDA-Public Use
  Company Number: GB-BIOGEN-2017BI00392119

PATIENT
  Age: 52 Year
  Sex: Female
  Weight: 52 kg

DRUGS (10)
  1. CARMELLOSE [Concomitant]
     Indication: DRY EYE
     Route: 061
     Dates: start: 20170408
  2. OXYBUTININ MR [Concomitant]
     Indication: BLADDER DISORDER
     Route: 048
     Dates: start: 201201
  3. BIOXTRA [Concomitant]
     Indication: DRY MOUTH
     Route: 061
     Dates: start: 20140409
  4. DACLIZUMAB HYP [Suspect]
     Active Substance: DACLIZUMAB
     Indication: MULTIPLE SCLEROSIS
     Route: 058
     Dates: start: 20140219
  5. BACLOFEN. [Concomitant]
     Active Substance: BACLOFEN
     Indication: MUSCULOSKELETAL STIFFNESS
     Route: 048
     Dates: start: 201312
  6. PREGABALIN. [Concomitant]
     Active Substance: PREGABALIN
     Indication: PAIN
     Route: 048
     Dates: start: 20170419
  7. XACLIN [Concomitant]
     Indication: DRY EYE
     Route: 061
     Dates: start: 20170408
  8. DIPROBASE [Concomitant]
     Active Substance: CHLOROCRESOL
     Indication: RASH
     Route: 061
     Dates: start: 20151217
  9. AMOXICILLIN. [Concomitant]
     Active Substance: AMOXICILLIN
     Indication: PROPHYLAXIS
     Route: 048
     Dates: start: 20170412, end: 20170416
  10. AMITRIPTYLINE [Concomitant]
     Active Substance: AMITRIPTYLINE
     Indication: PAIN
     Dosage: AT NIGHT
     Route: 048
     Dates: start: 201212

REACTIONS (1)
  - Haemolytic anaemia [Recovered/Resolved]

NARRATIVE: CASE EVENT DATE: 20170419
